FAERS Safety Report 9185762 (Version 3)
Quarter: 2013Q4

REPORT INFORMATION
  Report Type: Spontaneous
  Country: FR (occurrence: FR)
  Receive Date: 20130325
  Receipt Date: 20131029
  Transmission Date: 20140711
  Serious: Yes (Other)
  Sender: FDA-Public Use
  Company Number: FR-AMGEN-FRASP2012015795

PATIENT
  Sex: Female
  Weight: 74 kg

DRUGS (7)
  1. ARANESP [Suspect]
     Indication: NEPHROPATHY
     Dosage: 40 MUG, Q2WK
     Route: 058
     Dates: start: 20120228
  2. LEVOTHYROXINE [Concomitant]
     Dosage: 100 MUG, QD
  3. CALCIPARINE [Concomitant]
     Dosage: 0.5 UNK, UNK
     Dates: start: 20120501
  4. PLAQUENIL                          /00072602/ [Concomitant]
     Dosage: 200 UNK, QD
  5. CORTANCYL [Concomitant]
     Dosage: 20 UNK, QD
  6. LOXEN [Concomitant]
  7. KARDEGIC [Concomitant]
     Dosage: 75 MG, QD

REACTIONS (3)
  - Pre-eclampsia [Unknown]
  - Oligohydramnios [Unknown]
  - Caesarean section [Unknown]
